FAERS Safety Report 25791585 (Version 3)
Quarter: 2025Q3

REPORT INFORMATION
  Report Type: Spontaneous
  Country: GB (occurrence: GB)
  Receive Date: 20250911
  Receipt Date: 20250929
  Transmission Date: 20251021
  Serious: Yes (Other)
  Sender: PFIZER
  Company Number: GB-MLMSERVICE-20250829-PI628944-00336-1

PATIENT
  Age: 42 Year
  Sex: Male
  Weight: 53.8 kg

DRUGS (4)
  1. ZOLEDRONIC ACID [Suspect]
     Active Substance: ZOLEDRONIC ACID
     Indication: Bone pain
     Dates: start: 2020
  2. ZOLEDRONIC ACID [Suspect]
     Active Substance: ZOLEDRONIC ACID
     Indication: Arthralgia
     Route: 042
     Dates: start: 2022
  3. ZOLEDRONIC ACID [Suspect]
     Active Substance: ZOLEDRONIC ACID
     Indication: Disease recurrence
  4. ZOLEDRONIC ACID [Suspect]
     Active Substance: ZOLEDRONIC ACID
     Indication: Progressive diaphyseal dysplasia

REACTIONS (6)
  - Bone pain [Recovered/Resolved]
  - C-telopeptide increased [Unknown]
  - Bone pain [Recovering/Resolving]
  - Deafness [Unknown]
  - Condition aggravated [Recovering/Resolving]
  - Off label use [Unknown]

NARRATIVE: CASE EVENT DATE: 20200101
